FAERS Safety Report 21144679 (Version 1)
Quarter: 2022Q3

REPORT INFORMATION
  Report Type: Spontaneous
  Country: US (occurrence: US)
  Receive Date: 20220728
  Receipt Date: 20220728
  Transmission Date: 20221027
  Serious: No
  Sender: FDA-Public Use
  Company Number: US-BEH-2022147948

PATIENT
  Age: 10 Year
  Sex: Male
  Weight: 45 kg

DRUGS (1)
  1. HIZENTRA [Suspect]
     Active Substance: HUMAN IMMUNOGLOBULIN G
     Indication: Primary immunodeficiency syndrome
     Dosage: 12 GRAM, QOW
     Route: 065

REACTIONS (4)
  - Infusion site extravasation [Recovered/Resolved]
  - Infusion site pain [Recovered/Resolved]
  - Infusion site extravasation [Unknown]
  - Infusion site pain [Unknown]
